FAERS Safety Report 4320342-8 (Version None)
Quarter: 2004Q1

REPORT INFORMATION
  Report Type: 
  Country: None (occurrence: None)
  Receive Date: 20040317
  Receipt Date: 20030915
  Transmission Date: 20041129
  Serious: Yes (Hospitalization)
  Sender: FDA-Public Use
  Company Number: M2004.0122

PATIENT
  Age: 68 Year
  Sex: Male

DRUGS (3)
  1. METRONIDAZOLE [Suspect]
     Indication: HELICOBACTER INFECTION
  2. LANSOPRAZOLE, CLARITHROMYCIN [Concomitant]
  3. CLAROTHROMYCIN [Concomitant]

REACTIONS (3)
  - CIRCULATORY COLLAPSE [None]
  - DYSURIA [None]
  - SYNCOPE [None]
